FAERS Safety Report 16903703 (Version 1)
Quarter: 2019Q4

REPORT INFORMATION
  Report Type: Spontaneous
  Country: US (occurrence: US)
  Receive Date: 20190819
  Receipt Date: 20190819
  Transmission Date: 20200122
  Serious: No
  Sender: FDA-Public Use
  Company Number: None

PATIENT
  Age: 67 Year
  Sex: Female

DRUGS (1)
  1. XELJANZ XR [Suspect]
     Active Substance: TOFACITINIB CITRATE
     Indication: GASTROENTERITIS ROTAVIRUS
     Route: 048
     Dates: start: 20190208

REACTIONS (3)
  - Condition aggravated [None]
  - Drug ineffective [None]
  - Inflammation [None]

NARRATIVE: CASE EVENT DATE: 201907
